FAERS Safety Report 5713171-1 (Version None)
Quarter: 2008Q2

REPORT INFORMATION
  Report Type: 
  Country: None (occurrence: None)
  Receive Date: 20080422
  Receipt Date: 20080414
  Transmission Date: 20081010
  Serious: Yes (Other)
  Sender: FDA-Public Use
  Company Number: US-PURDUE-USA_2008_0032384

PATIENT
  Sex: Male
  Weight: 111 kg

DRUGS (9)
  1. OXYCONTIN [Suspect]
     Indication: BACK PAIN
     Dosage: UNK, SEE TEXT
     Dates: start: 20030728
  2. ACTIQ [Suspect]
     Indication: BACK PAIN
     Dosage: UNK, SEE TEXT
     Route: 002
  3. LORTAB [Suspect]
     Indication: BACK PAIN
     Dates: start: 20030728, end: 20041221
  4. DURAGESIC-100 [Suspect]
     Indication: DRUG USE FOR UNKNOWN INDICATION
  5. NORCO [Suspect]
     Indication: PAIN
     Dosage: 10 MG, UNK
     Dates: start: 20041221
  6. VALIUM [Concomitant]
     Dates: start: 20030728
  7. AMBIEN [Concomitant]
  8. NEURONTIN [Concomitant]
     Dates: end: 20050303
  9. TOPAMAX [Concomitant]
     Dates: start: 20050307, end: 20050314

REACTIONS (7)
  - CONSTIPATION [None]
  - DENTAL CARIES [None]
  - DEPRESSION [None]
  - DRUG DEPENDENCE [None]
  - SUICIDAL IDEATION [None]
  - TOOTH LOSS [None]
  - VISION BLURRED [None]
